FAERS Safety Report 10419838 (Version 1)
Quarter: 2014Q3

REPORT INFORMATION
  Report Type: Spontaneous
  Country: US (occurrence: None)
  Receive Date: 20140828
  Receipt Date: 20140828
  Transmission Date: 20150326
  Serious: Yes (Hospitalization)
  Sender: FDA-Public Use
  Company Number: FK201403446

PATIENT
  Age: 72 Year
  Sex: Female
  Weight: 55.8 kg

DRUGS (17)
  1. LEUCOVORIN CALCIUM. [Suspect]
     Active Substance: LEUCOVORIN CALCIUM
     Indication: PANCREATIC CARCINOMA
     Dosage: CYCLICAL
     Route: 042
     Dates: start: 20140612, end: 20140626
  2. PROCHLORPERAZ MALEATE (PROCHLORPERAZINE MALEATE) [Concomitant]
  3. OXALIPLATIN (OXALIPLATIN) [Suspect]
     Active Substance: OXALIPLATIN
     Indication: PANCREATIC CARCINOMA
     Dosage: CYCLICAL
     Route: 042
     Dates: start: 20140612, end: 20140626
  4. FISH OIL (FISH OIL) [Concomitant]
     Active Substance: FISH OIL
  5. DEXAMETHASONE (DEXAMETHASONE) [Concomitant]
     Active Substance: DEXAMETHASONE
  6. FLUOROURACIL INJECTION, USP (FLUOROURACIL) (FLUOROURACIL) [Suspect]
     Active Substance: FLUOROURACIL
     Indication: PANCREATIC CARCINOMA
     Dosage: 640 MG, CYCLICAL
     Route: 040
     Dates: start: 20140612, end: 20140626
  7. VITAMIN B COMPLEX [Concomitant]
     Active Substance: CYANOCOBALAMIN\DEXPANTHENOL\NIACINAMIDE\PYRIDOXINE HYDROCHLORIDE\RIBOFLAVIN 5^-PHOSPHATE SODIUM\THIAMINE HYDROCHLORIDE\VITAMIN B COMPLEX
  8. VITAMIN C [Concomitant]
     Active Substance: ASCORBIC ACID
  9. AMLODIPINE [Concomitant]
     Active Substance: AMLODIPINE BESYLATE
  10. VITAMIN D (ERGOCALCIFEROL) [Concomitant]
     Active Substance: ERGOCALCIFEROL
  11. LORAZEPAM (LORAZEPAM) [Concomitant]
     Active Substance: LORAZEPAM
  12. ONDANSETRON HYDROCHLORIDE (ONDANSETRON HYDROCHLORIDE) [Concomitant]
     Active Substance: ONDANSETRON HYDROCHLORIDE
  13. IRINOTECAN (IRINOTECAN) [Suspect]
     Active Substance: IRINOTECAN
     Indication: PANCREATIC CARCINOMA
     Dosage: CYCLICAL
     Route: 042
     Dates: start: 20140612, end: 20140626
  14. INVESTIGATIONAL DRUG (INVESTIGATIONAL DRUG) (INVESTIGATIONAL DRUG) [Suspect]
     Active Substance: INVESTIGATIONAL PRODUCT
     Indication: PANCREATIC CARCINOMA
     Route: 048
     Dates: start: 20140612, end: 20140626
  15. LEVOFLOXACIN (LEVOFLOXACIN) [Concomitant]
     Active Substance: LEVOFLOXACIN
  16. IRBESARTAN (IRBESARTAN) [Concomitant]
     Active Substance: IRBESARTAN
  17. LEXAPRO (ESCITALOPRAM) [Concomitant]

REACTIONS (1)
  - Febrile neutropenia [None]

NARRATIVE: CASE EVENT DATE: 20140626
